FAERS Safety Report 5451042-9 (Version None)
Quarter: 2007Q3

REPORT INFORMATION
  Report Type: 
  Country: None (occurrence: None)
  Receive Date: 20070911
  Receipt Date: 20070911
  Transmission Date: 20080115
  Serious: Yes (Death, Hospitalization)
  Sender: FDA-Public Use
  Company Number: 056-C5013-07090003

PATIENT
  Age: 73 Year
  Sex: Female
  Weight: 47 kg

DRUGS (1)
  1. CC-5013 (LENALIDOMIDE) (CAPSULES) [Suspect]
     Indication: MYELODYSPLASTIC SYNDROME
     Dosage: DAILY, ORAL
     Route: 048
     Dates: start: 20070514, end: 20070702

REACTIONS (7)
  - ACUTE MYELOID LEUKAEMIA [None]
  - APLASIA [None]
  - CHILLS [None]
  - COLITIS [None]
  - ERYSIPELAS [None]
  - LIVER ABSCESS [None]
  - PYREXIA [None]
